FAERS Safety Report 21550410 (Version 1)
Quarter: 2022Q4

REPORT INFORMATION
  Report Type: Spontaneous
  Country: US (occurrence: None)
  Receive Date: 20221103
  Receipt Date: 20221103
  Transmission Date: 20230113
  Serious: Yes (Life-Threatening)
  Sender: FDA-Public Use
  Company Number: None

PATIENT
  Age: 74 Year
  Sex: Female
  Weight: 118 kg

DRUGS (2)
  1. LISINOPRIL [Suspect]
     Active Substance: LISINOPRIL
     Indication: Hypotension
     Dosage: FREQUENCY : DAILY;?
     Route: 048
     Dates: start: 20200728, end: 20221024
  2. LISINOPRIL [Concomitant]
     Active Substance: LISINOPRIL
     Dates: start: 20200728, end: 20221024

REACTIONS (4)
  - Dyspnoea [None]
  - Oedema [None]
  - Lip oedema [None]
  - Angioedema [None]

NARRATIVE: CASE EVENT DATE: 20221025
